FAERS Safety Report 4955806-7 (Version None)
Quarter: 2006Q1

REPORT INFORMATION
  Report Type: 
  Country: None (occurrence: None)
  Receive Date: 20060323
  Receipt Date: 20060302
  Transmission Date: 20060701
  Serious: Yes (Hospitalization)
  Sender: FDA-Public Use
  Company Number: BSTA2006-0008

PATIENT
  Age: 67 Year
  Sex: Male

DRUGS (12)
  1. STALEVO 100 [Suspect]
     Indication: PARKINSON'S DISEASE
     Dosage: 600 ORAL
     Route: 048
     Dates: start: 20051111
  2. SIFROL [Concomitant]
  3. PX MERZ [Concomitant]
  4. CONCOR [Concomitant]
  5. CORANGIN [Concomitant]
  6. ALLOPURINOL [Concomitant]
  7. LOCOL [Concomitant]
  8. RAMIPRIL [Concomitant]
  9. FALITHROM [Concomitant]
  10. MINITRANS [Concomitant]
  11. SPASMEX 30 [Concomitant]
  12. COTRIM DS [Concomitant]

REACTIONS (6)
  - ASCITES [None]
  - BENIGN PROSTATIC HYPERPLASIA [None]
  - CYSTITIS [None]
  - HYDRONEPHROSIS [None]
  - HYPERKALAEMIA [None]
  - RENAL FAILURE ACUTE [None]
